FAERS Safety Report 15123273 (Version 1)
Quarter: 2018Q3

REPORT INFORMATION
  Report Type: Spontaneous
  Country: IL (occurrence: IL)
  Receive Date: 20180709
  Receipt Date: 20180709
  Transmission Date: 20181010
  Serious: Yes (Life-Threatening)
  Sender: FDA-Public Use
  Company Number: IL-SA-2018SA149597

PATIENT
  Age: 81 Year
  Sex: Male

DRUGS (6)
  1. METFORMIN [Concomitant]
     Active Substance: METFORMIN HYDROCHLORIDE
  2. LOSEC EXTRA [Concomitant]
  3. NORMITEN [Concomitant]
     Active Substance: ATENOLOL
  4. RECITAL [CITALOPRAM HYDROBROMIDE] [Concomitant]
  5. PLAVIX [Suspect]
     Active Substance: CLOPIDOGREL BISULFATE
     Dosage: UNK
     Dates: start: 20121029
  6. DIOVAN [Concomitant]
     Active Substance: VALSARTAN

REACTIONS (4)
  - Head injury [Unknown]
  - Cerebral haemorrhage [Unknown]
  - Fall [Unknown]
  - Subdural haemorrhage [Unknown]
